FAERS Safety Report 18919171 (Version 2)
Quarter: 2022Q2

REPORT INFORMATION
  Report Type: Report from Study
  Country: CA (occurrence: CA)
  Receive Date: 20210220
  Receipt Date: 20220506
  Transmission Date: 20220720
  Serious: Yes (Other)
  Sender: FDA-Public Use
  Company Number: CA-TAKEDA-2020TUS007274

PATIENT
  Age: 57 Year
  Sex: Male

DRUGS (5)
  1. VEDOLIZUMAB [Suspect]
     Active Substance: VEDOLIZUMAB
     Indication: Colitis ulcerative
     Dosage: 300 MILLIGRAM
     Route: 042
     Dates: start: 20190118
  2. VEDOLIZUMAB [Suspect]
     Active Substance: VEDOLIZUMAB
     Dosage: 300 MILLIGRAM
     Route: 042
  3. VEDOLIZUMAB [Suspect]
     Active Substance: VEDOLIZUMAB
     Dosage: 300 MILLIGRAM
     Route: 042
  4. PREDNISONE [Concomitant]
     Active Substance: PREDNISONE
     Dosage: UNK UNK, QD
     Route: 048
     Dates: start: 20190115
  5. IRON [Concomitant]
     Active Substance: IRON
     Indication: Anaemia
     Dosage: UNK

REACTIONS (13)
  - Haematochezia [Recovered/Resolved]
  - Pneumonia [Recovered/Resolved]
  - Dyspnoea [Not Recovered/Not Resolved]
  - Diarrhoea [Unknown]
  - Chills [Not Recovered/Not Resolved]
  - Atelectasis [Unknown]
  - Malaise [Unknown]
  - Hot flush [Not Recovered/Not Resolved]
  - Haemorrhoids [Unknown]
  - Productive cough [Not Recovered/Not Resolved]
  - Pyrexia [Recovered/Resolved]
  - Nasopharyngitis [Unknown]
  - Influenza [Recovered/Resolved]

NARRATIVE: CASE EVENT DATE: 20200125
